FAERS Safety Report 7330587-0 (Version None)
Quarter: 2011Q1

REPORT INFORMATION
  Report Type: 
  Country: None (occurrence: None)
  Receive Date: 20110304
  Receipt Date: 20110224
  Transmission Date: 20110831
  Serious: No
  Sender: FDA-Public Use
  Company Number: US-BIOGENIDEC-2011BI007458

PATIENT
  Age: 33 Year
  Sex: Female

DRUGS (8)
  1. AVONEX [Concomitant]
     Route: 030
     Dates: start: 20090213, end: 20091016
  2. 4-AMINOPYRIDINE [Concomitant]
     Indication: POOR QUALITY SLEEP
  3. AVONEX [Concomitant]
     Indication: MULTIPLE SCLEROSIS
     Route: 030
     Dates: start: 19990512
  4. 4-AMINOPYRIDINE [Concomitant]
     Dates: start: 20110131
  5. 4-AMINOPYRIDINE [Concomitant]
     Indication: GAIT DISTURBANCE
  6. AMANTADINE HCL [Concomitant]
     Indication: FATIGUE
  7. TYSABRI [Suspect]
     Indication: MULTIPLE SCLEROSIS
     Route: 042
     Dates: start: 20091229
  8. 4-AMINOPYRIDINE [Concomitant]
     Dates: start: 20110131

REACTIONS (3)
  - DRUG EFFECT DECREASED [None]
  - GAIT DISTURBANCE [None]
  - FATIGUE [None]
